FAERS Safety Report 7170645-7 (Version None)
Quarter: 2010Q4

REPORT INFORMATION
  Report Type: 
  Country: None (occurrence: None)
  Receive Date: 20101217
  Receipt Date: 20101214
  Transmission Date: 20110411
  Serious: Yes (Death)
  Sender: FDA-Public Use
  Company Number: B0653415A

PATIENT
  Sex: Female

DRUGS (8)
  1. CEFTAZIDIME SODIUM [Suspect]
     Indication: BRONCHIECTASIS
     Dosage: 2G PER DAY
     Route: 042
     Dates: start: 20090801
  2. LISINOPRIL [Concomitant]
     Dosage: 40MG PER DAY
     Route: 048
  3. SALBUTAMOL NEBULISER [Concomitant]
     Dosage: 25MG FOUR TIMES PER DAY
     Route: 055
  4. ATROVENT NEBULISER [Concomitant]
     Dosage: 500MG FOUR TIMES PER DAY
     Route: 055
  5. ALVERINE CITRATE [Concomitant]
     Dosage: 120MG THREE TIMES PER DAY
     Route: 048
  6. OMEPRAZOLE [Concomitant]
     Dosage: 20MG TWICE PER DAY
     Route: 048
  7. FUROSEMIDE [Concomitant]
     Dosage: 40MG PER DAY
     Route: 048
  8. PROCHLORPERAZINE [Concomitant]
     Dosage: 5MG THREE TIMES PER DAY
     Route: 048

REACTIONS (6)
  - ANAPHYLACTIC REACTION [None]
  - CARDIO-RESPIRATORY ARREST [None]
  - MALAISE [None]
  - NAUSEA [None]
  - OEDEMA MOUTH [None]
  - SWOLLEN TONGUE [None]
